FAERS Safety Report 8914311 (Version 1)
Quarter: 2012Q4

REPORT INFORMATION
  Report Type: 
  Country: US (occurrence: US)
  Receive Date: 20121116
  Receipt Date: 20121116
  Transmission Date: 20130627
  Serious: Yes (Other)
  Sender: FDA-Public Use
  Company Number: US-ASTRAZENECA-2012SE85215

PATIENT
  Age: 53 Year
  Sex: Female

DRUGS (11)
  1. NEXIUM [Suspect]
     Route: 048
     Dates: start: 20121105
  2. LISINOPRIL [Suspect]
     Route: 048
  3. ASPIRIN [Suspect]
     Route: 048
     Dates: start: 20080424
  4. GABAPENTIN [Concomitant]
     Route: 048
     Dates: start: 20121105
  5. BUMETANIDE [Concomitant]
     Route: 048
     Dates: start: 20121105
  6. CALCIUM ACETATE [Concomitant]
     Route: 048
  7. LABETALOL HCL [Concomitant]
     Route: 048
  8. CIPROFLOXACIN HCL [Concomitant]
     Route: 048
  9. MAGNESIUM OXIDE [Concomitant]
     Route: 048
     Dates: start: 20120910
  10. LEXAPRO [Concomitant]
     Route: 048
     Dates: start: 20120514
  11. FERROUS SULFATE [Concomitant]
     Dosage: 325 (65 FE)MG. THREE TIMES DAILY
     Route: 048

REACTIONS (32)
  - Rectal haemorrhage [Unknown]
  - Pulmonary mass [Unknown]
  - Lipoma [Unknown]
  - Cellulitis [Unknown]
  - Hypomagnesaemia [Unknown]
  - Pain in extremity [Unknown]
  - Acute sinusitis [Unknown]
  - Sinusitis [Unknown]
  - Otitis externa [Unknown]
  - Neuralgia [Unknown]
  - Congenital cystic kidney disease [Unknown]
  - Musculoskeletal pain [Unknown]
  - Iron deficiency anaemia [Unknown]
  - Renal failure chronic [Unknown]
  - Secondary hypertension [Unknown]
  - Fatigue [Unknown]
  - Overweight [Unknown]
  - Hypertension [Unknown]
  - Hyperlipidaemia [Unknown]
  - Diabetes mellitus [Unknown]
  - Otitis media acute [Unknown]
  - Haematuria [Unknown]
  - Bronchitis [Unknown]
  - Chest pain [Unknown]
  - Pain [Unknown]
  - Nephrogenic anaemia [Unknown]
  - Hyponatraemia [Unknown]
  - Abdominal pain upper [Unknown]
  - Headache [Unknown]
  - Arthralgia [Unknown]
  - Swollen tongue [Unknown]
  - Drug hypersensitivity [Unknown]
